FAERS Safety Report 21618347 (Version 3)
Quarter: 2022Q4

REPORT INFORMATION
  Report Type: Report from Study
  Country: US (occurrence: US)
  Receive Date: 20221119
  Receipt Date: 20221202
  Transmission Date: 20230112
  Serious: No
  Sender: FDA-Public Use
  Company Number: US-002147023-NVSC2022US260823

PATIENT
  Sex: Female

DRUGS (3)
  1. KESIMPTA [Suspect]
     Active Substance: OFATUMUMAB
     Indication: Multiple sclerosis
     Dosage: 20 MG, QMO (FIRST LOADING DOSE)
     Route: 058
     Dates: start: 20221111
  2. KESIMPTA [Suspect]
     Active Substance: OFATUMUMAB
     Dosage: 20 MG, QW (INJECT 1 PEN (20MG) SUBCUTANEOUSLY AT WEEK 0, WEEK 1 AND WEEK 2 AS DIRECTED) (20MG/0.4ML)
     Route: 058
  3. IBUPROFEN [Concomitant]
     Active Substance: IBUPROFEN
     Indication: Product used for unknown indication
     Dosage: UNK
     Route: 065

REACTIONS (10)
  - Chills [Unknown]
  - Pyrexia [Unknown]
  - Muscular weakness [Unknown]
  - Injection site pain [Unknown]
  - Headache [Unknown]
  - Nausea [Unknown]
  - Myalgia [Unknown]
  - Decreased appetite [Unknown]
  - Fatigue [Unknown]
  - Influenza like illness [Unknown]
